FAERS Safety Report 9733652 (Version 1)
Quarter: 2013Q4

REPORT INFORMATION
  Report Type: Spontaneous
  Country: US (occurrence: US)
  Receive Date: 20131205
  Receipt Date: 20131205
  Transmission Date: 20140711
  Serious: Yes (Other)
  Sender: FDA-Public Use
  Company Number: US-TAKEDA-2013TUS002830

PATIENT
  Sex: 0

DRUGS (3)
  1. COLCRYS [Suspect]
     Indication: GOUT
     Dosage: UNK
     Route: 048
  2. ALLOPURINOL [Concomitant]
     Indication: GOUT
     Route: 048
  3. CIPRO                              /00697201/ [Concomitant]
     Indication: CYSTITIS

REACTIONS (1)
  - Renal failure acute [Recovered/Resolved]
